FAERS Safety Report 11256294 (Version 1)
Quarter: 2015Q3

REPORT INFORMATION
  Report Type: Spontaneous
  Country: IR (occurrence: IR)
  Receive Date: 20150709
  Receipt Date: 20150709
  Transmission Date: 20151125
  Serious: Yes (Other)
  Sender: FDA-Public Use
  Company Number: PHHY2015IR079515

PATIENT
  Age: 40 Year
  Sex: Female

DRUGS (1)
  1. EBETAXEL [Suspect]
     Active Substance: PACLITAXEL
     Indication: BREAST CANCER
     Dosage: 30 MG, UNK
     Route: 066
     Dates: start: 20150608, end: 20150608

REACTIONS (5)
  - Respiratory distress [Recovered/Resolved]
  - Hot flush [Recovered/Resolved]
  - Cyanosis [Recovered/Resolved]
  - Respiratory depression [Recovered/Resolved]
  - Heart rate increased [Recovered/Resolved]

NARRATIVE: CASE EVENT DATE: 20150608
